FAERS Safety Report 7592825-9 (Version None)
Quarter: 2011Q3

REPORT INFORMATION
  Report Type: 
  Country: None (occurrence: None)
  Receive Date: 20110706
  Receipt Date: 20110629
  Transmission Date: 20111222
  Serious: Yes (Death, Other)
  Sender: FDA-Public Use
  Company Number: JP-AMGEN-JPNCT2011034102

PATIENT
  Age: 65 Year
  Sex: Female
  Weight: 44 kg

DRUGS (12)
  1. PANITUMUMAB [Suspect]
     Indication: COLORECTAL CANCER
     Dosage: 6 MG/KG, Q2WK
     Route: 041
     Dates: start: 20100708
  2. BROTIZOLAM M [Concomitant]
     Indication: INSOMNIA
     Route: 048
     Dates: start: 20090930
  3. OXYCONTIN [Concomitant]
     Indication: PAIN
     Route: 048
     Dates: start: 20100618
  4. PROCHLORPERAZINE [Concomitant]
     Indication: VOMITING
     Route: 048
     Dates: start: 20100623
  5. PYDOXAL [Concomitant]
     Indication: NEUROPATHY PERIPHERAL
     Route: 048
     Dates: start: 20091224
  6. SHAKUYAKUKANZOUTOU [Concomitant]
     Indication: NEUROPATHY PERIPHERAL
     Route: 048
     Dates: start: 20091224
  7. CINAL [Concomitant]
     Indication: PIGMENTATION DISORDER
     Route: 048
     Dates: start: 20100420
  8. TIZANIDINE HYDROCHLORIDE [Concomitant]
     Indication: NECK PAIN
     Route: 048
     Dates: start: 20100622
  9. LOXOPROFEN [Concomitant]
     Indication: PAIN
     Route: 048
     Dates: start: 20100507
  10. SENNOSIDE [Concomitant]
     Indication: CONSTIPATION
     Dosage: 16 MG, UNK
     Route: 048
     Dates: start: 20100514
  11. REBAMIPIDE [Concomitant]
     Indication: GASTRITIS PROPHYLAXIS
     Route: 048
     Dates: start: 20100507
  12. VOLTAREN [Concomitant]
     Indication: PAIN
     Dosage: 15 MG, UNK
     Route: 062
     Dates: start: 20100622

REACTIONS (3)
  - COLORECTAL CANCER [None]
  - DERMATITIS ACNEIFORM [None]
  - HYPERTENSION [None]
